FAERS Safety Report 19821736 (Version 1)
Quarter: 2021Q3

REPORT INFORMATION
  Report Type: Spontaneous
  Country: US (occurrence: US)
  Receive Date: 20210910
  Receipt Date: 20210910
  Transmission Date: 20211014
  Serious: No
  Sender: FDA-Public Use
  Company Number: None

PATIENT
  Age: 55 Year
  Sex: Male
  Weight: 83 kg

DRUGS (1)
  1. HEPARIN (HEPARIN NA 5000UNT/ML INJ) [Suspect]
     Active Substance: HEPARIN SODIUM
     Indication: THROMBOSIS PROPHYLAXIS
     Dosage: OTHER DOSE:5000 UNITS;  TID SQ?
     Route: 058
     Dates: start: 20210808, end: 20210809

REACTIONS (3)
  - Thrombocytopenia [None]
  - Intracardiac thrombus [None]
  - Sepsis [None]

NARRATIVE: CASE EVENT DATE: 20210809
